FAERS Safety Report 9175975 (Version 1)
Quarter: 2013Q1

REPORT INFORMATION
  Report Type: Spontaneous
  Country: US (occurrence: US)
  Receive Date: 20130320
  Receipt Date: 20130320
  Transmission Date: 20140127
  Serious: Yes (Other)
  Sender: FDA-Public Use
  Company Number: US-PFIZER INC-2013090678

PATIENT
  Age: 62 Year
  Sex: Female
  Weight: 50.79 kg

DRUGS (5)
  1. LYRICA [Suspect]
     Indication: RESTLESS LEGS SYNDROME
     Dosage: UNK, 2X/DAY
     Route: 048
  2. NEURONTIN [Suspect]
     Indication: NEURALGIA
     Dosage: UNK, 1X/DAY
     Route: 048
  3. REQUIP [Suspect]
     Indication: RESTLESS LEGS SYNDROME
     Dosage: UNK, 1X/DAY
     Route: 048
     Dates: start: 20130314, end: 20130316
  4. SYNTHROID [Concomitant]
     Dosage: UNK
  5. XANAX [Concomitant]
     Dosage: UNK

REACTIONS (10)
  - Hypotension [Unknown]
  - Loss of consciousness [Unknown]
  - Hyperhidrosis [Unknown]
  - Syncope [Unknown]
  - Dizziness [Unknown]
  - Nausea [Unknown]
  - Dysphagia [Unknown]
  - Feeling abnormal [Unknown]
  - Somnolence [Unknown]
  - Off label use [Unknown]
